FAERS Safety Report 14142927 (Version 2)
Quarter: 2017Q4

REPORT INFORMATION
  Report Type: Report from Study
  Country: US (occurrence: US)
  Receive Date: 20171030
  Receipt Date: 20171109
  Transmission Date: 20180321
  Serious: Yes (Death)
  Sender: FDA-Public Use
  Company Number: US-EXELIXIS-CABO-17011002

PATIENT
  Sex: Male

DRUGS (24)
  1. JANUVIA [Concomitant]
     Active Substance: SITAGLIPTIN PHOSPHATE
  2. HUMALOG [Concomitant]
     Active Substance: INSULIN LISPRO
  3. DIGOXIN. [Concomitant]
     Active Substance: DIGOXIN
  4. VITAMIN D [Concomitant]
     Active Substance: CHOLECALCIFEROL
  5. PAXIL [Concomitant]
     Active Substance: PAROXETINE HYDROCHLORIDE
  6. DONEPEZIL. [Concomitant]
     Active Substance: DONEPEZIL
  7. ALLOPURINOL. [Concomitant]
     Active Substance: ALLOPURINOL
  8. IMDUR [Concomitant]
     Active Substance: ISOSORBIDE MONONITRATE
  9. METOPROLOL. [Concomitant]
     Active Substance: METOPROLOL
  10. DOXEPIN [Concomitant]
     Active Substance: DOXEPIN
  11. CABOMETYX [Suspect]
     Active Substance: CABOZANTINIB S-MALATE
     Indication: RENAL CANCER
     Dosage: 20 MG, QD
     Route: 048
     Dates: start: 20170624
  12. LANTUS [Concomitant]
     Active Substance: INSULIN GLARGINE
  13. FLOMAX [Concomitant]
     Active Substance: TAMSULOSIN HYDROCHLORIDE
  14. COUMADIN [Concomitant]
     Active Substance: WARFARIN SODIUM
  15. VITAMIN B12 [Concomitant]
     Active Substance: CYANOCOBALAMIN
  16. PRESERVISION [Concomitant]
     Active Substance: MINERALS\VITAMINS
  17. MAGNESIUM [Concomitant]
     Active Substance: MAGNESIUM
  18. CRESTOR [Concomitant]
     Active Substance: ROSUVASTATIN CALCIUM
  19. LEVOXYL [Concomitant]
     Active Substance: LEVOTHYROXINE SODIUM
  20. CABOMETYX [Suspect]
     Active Substance: CABOZANTINIB S-MALATE
     Dosage: 40 MG, QD
     Route: 048
  21. ENTRESTO [Concomitant]
     Active Substance: SACUBITRIL\VALSARTAN
  22. BUMETANIDE. [Concomitant]
     Active Substance: BUMETANIDE
  23. PREDNISONE. [Concomitant]
     Active Substance: PREDNISONE
  24. SODIUM BICARBONATE. [Concomitant]
     Active Substance: SODIUM BICARBONATE

REACTIONS (1)
  - Malignant neoplasm progression [Fatal]
